FAERS Safety Report 9611001 (Version 1)
Quarter: 2013Q4

REPORT INFORMATION
  Report Type: Spontaneous
  Country: US (occurrence: US)
  Receive Date: 20131009
  Receipt Date: 20131009
  Transmission Date: 20140711
  Serious: Yes (Other)
  Sender: FDA-Public Use
  Company Number: US-GLAXOSMITHKLINE-A1044632A

PATIENT
  Sex: Female

DRUGS (1)
  1. ADVAIR [Suspect]
     Indication: RESPIRATORY DISORDER
     Route: 065

REACTIONS (2)
  - Helminthic infection [Unknown]
  - Infection parasitic [Unknown]
